FAERS Safety Report 4519660-X (Version None)
Quarter: 2004Q4

REPORT INFORMATION
  Report Type: 
  Country: None (occurrence: None)
  Receive Date: 20041206
  Receipt Date: 20041122
  Transmission Date: 20050328
  Serious: Yes (Other)
  Sender: FDA-Public Use
  Company Number: PHFR2004GB04326

PATIENT
  Age: 51 Year
  Sex: Female

DRUGS (10)
  1. PREGABALIN [Suspect]
     Dosage: 75 MG, BID
     Route: 048
     Dates: start: 20041106
  2. TRAZODONE HCL [Concomitant]
     Dosage: 350MG NOCTE
     Route: 065
  3. TRAMADOL [Concomitant]
     Dosage: 50 MG, TID
     Route: 065
  4. CETIRIZINE HCL [Concomitant]
     Route: 065
  5. OMEPRAZOLE [Concomitant]
     Dosage: 20MG/DAY
     Route: 065
  6. LACTULOSE [Concomitant]
     Dosage: 15ML NOCTE
     Route: 065
  7. NAPROXEN [Concomitant]
     Dosage: 1-2 BID
     Route: 065
  8. GABAPENTIN [Concomitant]
     Dosage: 300 MG, TID
  9. NEFOPAM [Concomitant]
     Dosage: 600 MG, TID
     Route: 065
  10. BACLOFEN [Suspect]
     Indication: MUSCULOSKELETAL STIFFNESS
     Dosage: 10 MG, BID
     Route: 048
     Dates: start: 20041106, end: 20041109

REACTIONS (1)
  - PERIORBITAL OEDEMA [None]
